FAERS Safety Report 4895778-7 (Version None)
Quarter: 2006Q1

REPORT INFORMATION
  Report Type: 
  Country: None (occurrence: None)
  Receive Date: 20060124
  Receipt Date: 20060111
  Transmission Date: 20060701
  Serious: Yes (Other)
  Sender: FDA-Public Use
  Company Number: 2005BH000897

PATIENT
  Age: 9 Year
  Sex: Male

DRUGS (8)
  1. RECOMBINATE [Suspect]
     Indication: PROPHYLAXIS
     Dosage: 10 IU/KG; 3X A WEEK;
     Dates: start: 20040915
  2. RECOMBINATE [Suspect]
  3. RECOMBINATE [Suspect]
  4. RECOMBINATE [Suspect]
  5. RECOMBINATE [Suspect]
  6. RECOMBINATE [Suspect]
  7. RECOMBINATE [Suspect]
  8. RECOMBINATE [Suspect]

REACTIONS (2)
  - HIV TEST FALSE POSITIVE [None]
  - SEROCONVERSION TEST POSITIVE [None]
